FAERS Safety Report 9637651 (Version 1)
Quarter: 2013Q4

REPORT INFORMATION
  Report Type: Spontaneous
  Country: DK (occurrence: GB)
  Receive Date: 20131022
  Receipt Date: 20131022
  Transmission Date: 20140711
  Serious: Yes (Hospitalization, Other)
  Sender: FDA-Public Use
  Company Number: GB-FRI-1000050325

PATIENT
  Age: 0 Day
  Sex: 0

DRUGS (5)
  1. DINOPROSTONE [Suspect]
     Indication: LABOUR INDUCTION
     Dosage: 10 MG
     Route: 064
     Dates: start: 20130709, end: 20130709
  2. EFAVIRENZ [Concomitant]
     Dosage: 600 MG
     Route: 064
  3. LAMIVUDINE [Concomitant]
     Dosage: 300 MG
     Route: 064
  4. HYDROXYCHLOROQUINE [Concomitant]
     Dosage: 400 MG
     Route: 064
  5. SULFASALAZINE [Concomitant]
     Dosage: 500 MG
     Route: 064

REACTIONS (2)
  - Foetal distress syndrome [Unknown]
  - Apgar score low [Unknown]
